FAERS Safety Report 8201975-5 (Version None)
Quarter: 2012Q1

REPORT INFORMATION
  Report Type: 
  Country: None (occurrence: None)
  Receive Date: 20120308
  Receipt Date: 20120227
  Transmission Date: 20120608
  Serious: Yes (Hospitalization)
  Sender: FDA-Public Use
  Company Number: JPI-P-018890

PATIENT
  Age: 25 Year
  Sex: Female
  Weight: 111.1313 kg

DRUGS (14)
  1. ETHINYLESTRADIOL W/NORGESTIMATE [Concomitant]
  2. XYREM [Suspect]
     Indication: SOMNOLENCE
     Dosage: SEE IMAGE
     Route: 048
     Dates: start: 20110622
  3. XYREM [Suspect]
     Indication: NARCOLEPSY
     Dosage: SEE IMAGE
     Route: 048
     Dates: start: 20110622
  4. XYREM [Suspect]
     Indication: SOMNOLENCE
     Dosage: SEE IMAGE
     Route: 048
     Dates: start: 20110101
  5. XYREM [Suspect]
     Indication: NARCOLEPSY
     Dosage: SEE IMAGE
     Route: 048
     Dates: start: 20110101
  6. XYREM [Suspect]
     Indication: SOMNOLENCE
     Dosage: SEE IMAGE
     Route: 048
     Dates: start: 20110516
  7. XYREM [Suspect]
     Indication: NARCOLEPSY
     Dosage: SEE IMAGE
     Route: 048
     Dates: start: 20110516
  8. XYREM [Suspect]
     Indication: SOMNOLENCE
     Dosage: SEE IMAGE
     Route: 048
     Dates: start: 20110101, end: 20110621
  9. XYREM [Suspect]
     Indication: NARCOLEPSY
     Dosage: SEE IMAGE
     Route: 048
     Dates: start: 20110101, end: 20110621
  10. LAMOTRIGINE [Concomitant]
  11. PROPRANOLOL [Concomitant]
  12. ESCITALOPRAM OXALATE [Concomitant]
  13. AMPHETAMINE, DEXTROAMPHETAMINE MIXED SALTS [Concomitant]
  14. XYREM [Suspect]

REACTIONS (11)
  - NIGHT SWEATS [None]
  - WEIGHT DECREASED [None]
  - OVARIAN TORSION [None]
  - THIRST [None]
  - INSOMNIA [None]
  - EMOTIONAL DISORDER [None]
  - FATIGUE [None]
  - STOMATITIS [None]
  - HUNGER [None]
  - MENOPAUSE [None]
  - INITIAL INSOMNIA [None]
